FAERS Safety Report 9798068 (Version 1)
Quarter: 2014Q1

REPORT INFORMATION
  Report Type: Spontaneous
  Country: FR (occurrence: None)
  Receive Date: 20140102
  Receipt Date: 20140102
  Transmission Date: 20141002
  Serious: Yes (Hospitalization)
  Sender: FDA-Public Use
  Company Number: 1979729

PATIENT
  Age: 71 Year
  Sex: Female

DRUGS (4)
  1. CARBOPLATIN [Suspect]
     Indication: OVARIAN CANCER
     Route: 041
     Dates: start: 20100909, end: 20100909
  2. ENDOXAN [Concomitant]
  3. METHYLPREDNISOLONE MERCK [Concomitant]
  4. ZOPHREN [Concomitant]

REACTIONS (10)
  - Tremor [None]
  - Pruritus [None]
  - Erythema [None]
  - Malaise [None]
  - Diarrhoea [None]
  - Vomiting [None]
  - Abdominal pain [None]
  - Heart rate increased [None]
  - Oxygen saturation increased [None]
  - Blood pressure systolic increased [None]
